FAERS Safety Report 9347902 (Version 5)
Quarter: 2013Q3

REPORT INFORMATION
  Report Type: Spontaneous
  Country: JP (occurrence: JP)
  Receive Date: 20130614
  Receipt Date: 20130806
  Transmission Date: 20140515
  Serious: Yes (Death, Life-Threatening, Hospitalization, Other)
  Sender: FDA-Public Use
  Company Number: JP-TEVA-409142USA

PATIENT
  Age: 52 Year
  Sex: Male
  Weight: 53 kg

DRUGS (13)
  1. BENDAMUSTINE [Suspect]
     Indication: B-CELL LYMPHOMA
     Dosage: UID/QD
     Route: 042
     Dates: start: 20120201, end: 20120202
  2. BENDAMUSTINE [Suspect]
     Dosage: UID/QD
     Route: 042
     Dates: start: 20120222, end: 20120223
  3. BENDAMUSTINE [Suspect]
     Dosage: UID/QD
     Route: 042
     Dates: start: 20120314, end: 20120315
  4. BENDAMUSTINE [Suspect]
     Dosage: UID/QD
     Route: 042
     Dates: start: 20120411, end: 20120412
  5. BENDAMUSTINE [Suspect]
     Dosage: UID/QD
     Route: 042
     Dates: start: 20120501, end: 20120502
  6. BENDAMUSTINE [Suspect]
     Dosage: UID/QD
     Route: 042
     Dates: start: 20120522, end: 20120523
  7. BENDAMUSTINE [Suspect]
     Route: 042
     Dates: start: 20120523
  8. AMLODIPINE BESILATE [Concomitant]
     Indication: HYPERTENSION
     Dates: start: 20120201
  9. OLOPATADINE HYDROCHLORIDE [Concomitant]
     Indication: DERMATITIS ALLERGIC
     Dates: start: 20120201
  10. OSELTAMIVIR PHOSPHATE [Concomitant]
     Indication: INFLUENZA
     Dates: start: 20120402, end: 20120406
  11. LOXOPROFEN SODIUM [Concomitant]
     Indication: PYREXIA
     Dosage: AS NEEDED
     Dates: start: 20120201
  12. NAPHAZOLINE NITRATE [Concomitant]
     Indication: RHINITIS ALLERGIC
     Dates: start: 20120501, end: 20120828
  13. RISPERIDONE [Concomitant]
     Indication: DELIRIUM
     Dates: start: 20120824, end: 20120828

REACTIONS (5)
  - Pneumothorax [Unknown]
  - Myelodysplastic syndrome [Not Recovered/Not Resolved]
  - Acute myeloid leukaemia [Fatal]
  - Pneumocystis jirovecii pneumonia [Recovered/Resolved]
  - Hypopharyngeal cancer [Recovering/Resolving]
